FAERS Safety Report 23735804 (Version 1)
Quarter: 2024Q2

REPORT INFORMATION
  Report Type: Spontaneous
  Country: PL (occurrence: PL)
  Receive Date: 20240412
  Receipt Date: 20240412
  Transmission Date: 20240715
  Serious: Yes (Other)
  Sender: FDA-Public Use
  Company Number: PL-GILEAD-2024-0669119

PATIENT
  Age: 54 Year
  Sex: Female

DRUGS (1)
  1. TRODELVY [Suspect]
     Active Substance: SACITUZUMAB GOVITECAN-HZIY
     Indication: Triple negative breast cancer
     Dosage: AFTER 8 CYCLES
     Route: 065

REACTIONS (3)
  - Disease progression [Unknown]
  - Alopecia [Unknown]
  - Upper respiratory tract infection [Unknown]
